FAERS Safety Report 9201325 (Version 4)
Quarter: 2014Q1

REPORT INFORMATION
  Report Type: Spontaneous
  Country: JP (occurrence: JP)
  Receive Date: 20130401
  Receipt Date: 20140120
  Transmission Date: 20141002
  Serious: Yes (Hospitalization, Other)
  Sender: FDA-Public Use
  Company Number: PHHY2013JP030914

PATIENT
  Age: 91 Year
  Sex: Female

DRUGS (4)
  1. EXELON PATCH [Suspect]
     Indication: DEMENTIA ALZHEIMER^S TYPE
     Dosage: 9 MG, DAILY
     Route: 062
  2. EXELON PATCH [Suspect]
     Dosage: 18 MG, DAILY
     Route: 062
     Dates: start: 20121124, end: 20130312
  3. EXELON PATCH [Suspect]
     Dosage: 4.5 MG, DAILY
     Route: 062
  4. EXELON PATCH [Suspect]
     Dosage: 9 MG, DAILY
     Route: 062

REACTIONS (3)
  - Hypophagia [Unknown]
  - Cardiac failure [Unknown]
  - Asthenia [Recovered/Resolved]
